FAERS Safety Report 15265621 (Version 1)
Quarter: 2018Q3

REPORT INFORMATION
  Report Type: Spontaneous
  Country: BG (occurrence: BG)
  Receive Date: 20180810
  Receipt Date: 20180810
  Transmission Date: 20181010
  Serious: Yes (Other)
  Sender: FDA-Public Use
  Company Number: BG-SHIRE-BG201829362

PATIENT

DRUGS (6)
  1. ELAPRASE [Suspect]
     Active Substance: IDURSULFASE
     Indication: MUCOPOLYSACCHARIDOSIS II
     Dosage: 0.5 MG/KG, 1X/WEEK
     Route: 042
     Dates: start: 20121012, end: 20180726
  2. ELAPRASE [Suspect]
     Active Substance: IDURSULFASE
     Dosage: UNK MG/KG, UNK
     Route: 065
     Dates: start: 20180713
  3. ELAPRASE [Suspect]
     Active Substance: IDURSULFASE
     Dosage: UNK MG/KG, UNK
     Route: 065
     Dates: start: 20180705
  4. ZYRTEC [Concomitant]
     Active Substance: CETIRIZINE HYDROCHLORIDE
     Indication: PREMEDICATION
  5. ELAPRASE [Suspect]
     Active Substance: IDURSULFASE
     Dosage: UNK MG/KG, UNK
     Route: 065
     Dates: start: 20180720
  6. PARACETAMOL [Concomitant]
     Active Substance: ACETAMINOPHEN
     Indication: PREMEDICATION

REACTIONS (1)
  - Body temperature increased [Recovered/Resolved]

NARRATIVE: CASE EVENT DATE: 20180712
